FAERS Safety Report 5036943-8 (Version None)
Quarter: 2006Q2

REPORT INFORMATION
  Report Type: 
  Country: None (occurrence: None)
  Receive Date: 20060628
  Receipt Date: 20050323
  Transmission Date: 20061013
  Serious: Yes (Hospitalization, Other)
  Sender: FDA-Public Use
  Company Number: 200510897JP

PATIENT
  Age: 73 Year
  Sex: Male

DRUGS (9)
  1. ARAVA [Suspect]
     Indication: RHEUMATOID ARTHRITIS
     Route: 048
     Dates: start: 20031220, end: 20031222
  2. ARAVA [Suspect]
     Route: 048
     Dates: start: 20031223, end: 20040127
  3. RELIFEN [Concomitant]
     Indication: PAIN
     Route: 048
     Dates: end: 20031219
  4. HYPEN [Concomitant]
     Indication: PAIN
     Route: 048
     Dates: start: 20031220
  5. MUCOSTA [Concomitant]
     Indication: PROPHYLAXIS
     Route: 048
     Dates: start: 20020611
  6. PREDNISOLONE [Concomitant]
     Indication: INFLAMMATION
     Route: 048
     Dates: start: 20030519
  7. NEORAL [Concomitant]
     Indication: RHEUMATOID ARTHRITIS
     Route: 048
     Dates: start: 20030701, end: 20031219
  8. FARNERATE [Concomitant]
     Indication: INFLAMMATION
     Route: 003
     Dates: start: 20031114
  9. KETOPROFEN [Concomitant]
     Indication: PAIN
     Route: 062
     Dates: start: 20040120

REACTIONS (5)
  - ALANINE AMINOTRANSFERASE INCREASED [None]
  - BLOOD ALKALINE PHOSPHATASE INCREASED [None]
  - BLOOD LACTATE DEHYDROGENASE INCREASED [None]
  - GAMMA-GLUTAMYLTRANSFERASE INCREASED [None]
  - GASTRIC CANCER [None]
